FAERS Safety Report 7656863-X (Version None)
Quarter: 2011Q3

REPORT INFORMATION
  Report Type: 
  Country: None (occurrence: None)
  Receive Date: 20110801
  Receipt Date: 20110720
  Transmission Date: 20111222
  Serious: Yes (Death)
  Sender: FDA-Public Use
  Company Number: 2011BN000066

PATIENT
  Sex: Male

DRUGS (6)
  1. MELPHALAN HYDROCHLORIDE [Suspect]
     Indication: PLASMACYTOMA
  2. THALIDOMIDE [Concomitant]
  3. BORTEZOMIB [Concomitant]
  4. CYCLOPHOSPHAMIDE [Concomitant]
  5. DEXAMETHASONE [Suspect]
     Indication: PLASMACYTOMA
  6. PREDNISOLONE [Concomitant]

REACTIONS (10)
  - PLASMACYTOMA [None]
  - METASTASES TO ABDOMINAL CAVITY [None]
  - METASTASES TO RETROPERITONEUM [None]
  - METASTASES TO CENTRAL NERVOUS SYSTEM [None]
  - NEOPLASM PROGRESSION [None]
  - ASTHENIA [None]
  - METASTASES TO ADRENALS [None]
  - ABDOMINAL DISTENSION [None]
  - METASTASES TO BONE [None]
  - METASTASES TO LIVER [None]
